FAERS Safety Report 9263990 (Version 1)
Quarter: 2013Q2

REPORT INFORMATION
  Report Type: Spontaneous
  Country: CH (occurrence: CH)
  Receive Date: 20130430
  Receipt Date: 20130430
  Transmission Date: 20140414
  Serious: Yes (Death)
  Sender: FDA-Public Use
  Company Number: CH-GLAXOSMITHKLINE-B0888301A

PATIENT
  Age: 74 Year
  Sex: Male
  Weight: 65 kg

DRUGS (2)
  1. VOTRIENT [Suspect]
     Indication: RENAL CANCER
     Dosage: 400MG PER DAY
     Route: 048
     Dates: start: 20121213, end: 20130207
  2. CANDESARTAN CILEXETIL + HYDROCHLOROTHIAZIDE [Suspect]
     Indication: ESSENTIAL HYPERTENSION
     Dosage: 1TAB PER DAY
     Route: 048
     Dates: start: 201301, end: 201302

REACTIONS (7)
  - Renal failure acute [Fatal]
  - Hepatocellular injury [Fatal]
  - Hyperbilirubinaemia [Fatal]
  - Hepatic enzyme increased [Fatal]
  - Hepatic failure [None]
  - Cauda equina syndrome [None]
  - Tumour compression [None]
